FAERS Safety Report 17882208 (Version 1)
Quarter: 2020Q2

REPORT INFORMATION
  Report Type: Spontaneous
  Country: FR (occurrence: FR)
  Receive Date: 20200610
  Receipt Date: 20200610
  Transmission Date: 20200714
  Serious: Yes (Other)
  Sender: FDA-Public Use
  Company Number: FR-PURDUE PHARMA-GBR-2020-0077088

PATIENT
  Age: 47 Year
  Sex: Male

DRUGS (2)
  1. OXYCODONE HYDROCHLORIDE. [Suspect]
     Active Substance: OXYCODONE HYDROCHLORIDE
     Indication: PRODUCT USED FOR UNKNOWN INDICATION
     Dosage: 1 UNK, DAILY (JUSQUA 4 COMPRIMES PAR JOUR)
     Route: 048
     Dates: start: 20120625
  2. OXYNORMORO [Suspect]
     Active Substance: OXYCODONE HYDROCHLORIDE
     Indication: PRODUCT USED FOR UNKNOWN INDICATION
     Dosage: JUSQUA10 COMPRIMES PAR JOUR
     Route: 065
     Dates: start: 20120625

REACTIONS (2)
  - Drug dependence [Not Recovered/Not Resolved]
  - Housebound [Recovered/Resolved]

NARRATIVE: CASE EVENT DATE: 20120625
